FAERS Safety Report 16247474 (Version 1)
Quarter: 2019Q2

REPORT INFORMATION
  Report Type: Spontaneous
  Country: US (occurrence: US)
  Receive Date: 20190428
  Receipt Date: 20190428
  Transmission Date: 20190711
  Serious: No
  Sender: FDA-Public Use
  Company Number: US-BIOGEN-2019BI00729693

PATIENT
  Sex: Female

DRUGS (2)
  1. AVONEX [Suspect]
     Active Substance: INTERFERON BETA-1A
     Route: 065
     Dates: start: 20180402
  2. AVONEX [Suspect]
     Active Substance: INTERFERON BETA-1A
     Indication: MULTIPLE SCLEROSIS
     Route: 030
     Dates: start: 20120813, end: 20150219

REACTIONS (4)
  - Asthenia [Not Recovered/Not Resolved]
  - Product dose omission [Not Recovered/Not Resolved]
  - Gait disturbance [Not Recovered/Not Resolved]
  - Device malfunction [Unknown]
